FAERS Safety Report 8171595-X (Version None)
Quarter: 2012Q1

REPORT INFORMATION
  Report Type: 
  Country: None (occurrence: None)
  Receive Date: 20120113
  Receipt Date: 20111003
  Transmission Date: 20120608
  Serious: No
  Sender: FDA-Public Use
  Company Number: PHEH2011US05814

PATIENT
  Age: 17 Year
  Sex: Female

DRUGS (1)
  1. ILARIS [Suspect]
     Indication: EOSINOPHILIC CELLULITIS
     Dosage: 150 MG, Q8WEEKS, SUBCUTANEOUS
     Route: 058
     Dates: start: 20100901, end: 20110718

REACTIONS (2)
  - MALAISE [None]
  - DRUG INEFFECTIVE [None]
